FAERS Safety Report 25983886 (Version 1)
Quarter: 2025Q4

REPORT INFORMATION
  Report Type: Spontaneous
  Country: US (occurrence: US)
  Receive Date: 20251031
  Receipt Date: 20251031
  Transmission Date: 20260118
  Serious: No
  Sender: MYLAN
  Company Number: US-MYLANLABS-2025M1090206

PATIENT
  Age: 63 Year
  Sex: Female

DRUGS (4)
  1. RYZUMVI [Suspect]
     Active Substance: PHENTOLAMINE MESYLATE
     Indication: Mydriasis
     Dosage: 1 GTT DROPS (1 DROP TO BOTH EYES)
  2. RYZUMVI [Suspect]
     Active Substance: PHENTOLAMINE MESYLATE
     Dosage: 1 GTT DROPS (1 DROP TO BOTH EYES)
     Route: 047
  3. RYZUMVI [Suspect]
     Active Substance: PHENTOLAMINE MESYLATE
     Dosage: 1 GTT DROPS (1 DROP TO BOTH EYES)
     Route: 047
  4. RYZUMVI [Suspect]
     Active Substance: PHENTOLAMINE MESYLATE
     Dosage: 1 GTT DROPS (1 DROP TO BOTH EYES)

REACTIONS (1)
  - Drug ineffective [Unknown]

NARRATIVE: CASE EVENT DATE: 20251001
